FAERS Safety Report 25629522 (Version 3)
Quarter: 2025Q3

REPORT INFORMATION
  Report Type: Spontaneous
  Country: US (occurrence: US)
  Receive Date: 20250731
  Receipt Date: 20250822
  Transmission Date: 20251021
  Serious: No
  Sender: PFIZER
  Company Number: US-PFIZER INC-202500151346

PATIENT
  Age: 10 Year
  Sex: Female
  Weight: 31.3 kg

DRUGS (1)
  1. GENOTROPIN [Suspect]
     Active Substance: SOMATROPIN
     Indication: Short stature
     Dosage: 1 G, DAILY
     Route: 058
     Dates: start: 202507

REACTIONS (1)
  - Injection site pain [Recovered/Resolved]
